FAERS Safety Report 5604726-3 (Version None)
Quarter: 2008Q1

REPORT INFORMATION
  Report Type: 
  Country: None (occurrence: None)
  Receive Date: 20080128
  Receipt Date: 20080123
  Transmission Date: 20080703
  Serious: Yes (Hospitalization)
  Sender: FDA-Public Use
  Company Number: AT-JNJFOC-20080105755

PATIENT
  Age: 29 Year
  Sex: Male

DRUGS (2)
  1. HALDOL [Suspect]
     Indication: PSYCHOTIC DISORDER
     Route: 042
  2. GEWACALM [Concomitant]
     Indication: PSYCHOTIC DISORDER
     Route: 048

REACTIONS (2)
  - BALLISMUS [None]
  - DYSKINESIA [None]
